FAERS Safety Report 5571494-3 (Version None)
Quarter: 2007Q4

REPORT INFORMATION
  Report Type: 
  Country: None (occurrence: None)
  Receive Date: 20071221
  Receipt Date: 20071214
  Transmission Date: 20080405
  Serious: Yes (Disabling)
  Sender: FDA-Public Use
  Company Number: GB-ROCHE-537395

PATIENT
  Age: 60 Year
  Sex: Female

DRUGS (5)
  1. CAPECITABINE [Suspect]
     Indication: DRUG USE FOR UNKNOWN INDICATION
     Route: 048
     Dates: start: 20060930, end: 20060930
  2. ELOXATIN [Suspect]
     Route: 042
     Dates: start: 20060930, end: 20060930
  3. DEXAMETHASONE TAB [Concomitant]
  4. DOMPERIDONE [Concomitant]
     Indication: NAUSEA
  5. ONDANSETRON [Concomitant]
     Indication: NAUSEA
     Route: 048

REACTIONS (6)
  - BLINDNESS [None]
  - DIARRHOEA [None]
  - PALMAR-PLANTAR ERYTHRODYSAESTHESIA SYNDROME [None]
  - PAPILLITIS [None]
  - PARAESTHESIA [None]
  - UVEITIS [None]
